FAERS Safety Report 11705266 (Version 2)
Quarter: 2016Q1

REPORT INFORMATION
  Report Type: Spontaneous
  Country: US (occurrence: US)
  Receive Date: 20151106
  Receipt Date: 20160209
  Transmission Date: 20160525
  Serious: Yes (Hospitalization)
  Sender: FDA-Public Use
  Company Number: US-BEH-2015055416

PATIENT
  Sex: Female
  Weight: 121 kg

DRUGS (28)
  1. CYMBALTA [Concomitant]
     Active Substance: DULOXETINE HYDROCHLORIDE
  2. BUSPIRONE [Concomitant]
     Active Substance: BUSPIRONE HYDROCHLORIDE
  3. PRAMIPEXOLE. [Concomitant]
     Active Substance: PRAMIPEXOLE
  4. PROAIR HFA [Concomitant]
     Active Substance: ALBUTEROL SULFATE
  5. CHONDROITIN [Concomitant]
     Active Substance: CHONDROITIN
  6. DIPHENHYDRAMINE. [Concomitant]
     Active Substance: DIPHENHYDRAMINE
  7. LEVOCETIRIZINE [Concomitant]
     Active Substance: LEVOCETIRIZINE
  8. LEVOTHYROXINE. [Concomitant]
     Active Substance: LEVOTHYROXINE
  9. CLARITIN [Concomitant]
     Active Substance: LORATADINE
  10. ZEMAIRA [Suspect]
     Active Substance: .ALPHA.1-PROTEINASE INHIBITOR HUMAN
     Dosage: 954 MG/VL ; THERAPY STARTED ON ??-AUG-2014
     Route: 042
  11. EPIPEN [Concomitant]
     Active Substance: EPINEPHRINE
  12. OXYGEN. [Concomitant]
     Active Substance: OXYGEN
  13. BOTOX [Concomitant]
     Active Substance: ONABOTULINUMTOXINA
  14. CENTRUM SILVER [Concomitant]
     Active Substance: MINERALS\VITAMINS
  15. ZAFIRLUKAST. [Concomitant]
     Active Substance: ZAFIRLUKAST
  16. ZEMAIRA [Suspect]
     Active Substance: .ALPHA.1-PROTEINASE INHIBITOR HUMAN
     Indication: ALPHA-1 ANTI-TRYPSIN DEFICIENCY
     Dosage: 980 MG/VL ; THERAPY STARTED ON ??-AUG-2014
     Route: 042
  17. HEPARIN [Concomitant]
     Active Substance: HEPARIN SODIUM
  18. QVAR [Concomitant]
     Active Substance: BECLOMETHASONE DIPROPIONATE
  19. SODIUM CHLORIDE. [Concomitant]
     Active Substance: SODIUM CHLORIDE
  20. NEXIUM [Concomitant]
     Active Substance: ESOMEPRAZOLE MAGNESIUM
  21. CYCLOBENZAPRINE [Concomitant]
     Active Substance: CYCLOBENZAPRINE
  22. FISH OIL [Concomitant]
     Active Substance: FISH OIL
  23. BUDESONIDE. [Concomitant]
     Active Substance: BUDESONIDE
  24. GLUCOSAMINE [Concomitant]
     Active Substance: GLUCOSAMINE
  25. LMX [Concomitant]
     Active Substance: LIDOCAINE
  26. VITAMIN D [Concomitant]
     Active Substance: CHOLECALCIFEROL
  27. CALCIUM [Concomitant]
     Active Substance: CALCIUM
  28. SPIRIVA [Concomitant]
     Active Substance: TIOTROPIUM BROMIDE MONOHYDRATE

REACTIONS (1)
  - Bronchitis [Recovered/Resolved]
